FAERS Safety Report 18895001 (Version 6)
Quarter: 2021Q3

REPORT INFORMATION
  Report Type: Spontaneous
  Country: JP (occurrence: JP)
  Receive Date: 20210216
  Receipt Date: 20210716
  Transmission Date: 20211014
  Serious: Yes (Death, Hospitalization, Other)
  Sender: FDA-Public Use
  Company Number: JP-009507513-2102JPN001346J

PATIENT
  Age: 75 Year
  Sex: Male
  Weight: 47 kg

DRUGS (11)
  1. RABEPRAZOLE SODIUM. [Concomitant]
     Active Substance: RABEPRAZOLE SODIUM
     Indication: PROPHYLAXIS AGAINST GASTROINTESTINAL ULCER
     Dosage: 10 MILLIGRAM, QD
     Route: 048
     Dates: end: 20210209
  2. CARBOPLATIN. [Suspect]
     Active Substance: CARBOPLATIN
     Dosage: AUC2.5, Q3W
     Route: 042
     Dates: start: 20210128, end: 20210128
  3. CARBOPLATIN. [Suspect]
     Active Substance: CARBOPLATIN
     Dosage: 330 MILLIGRAM, Q3W
     Route: 041
     Dates: start: 20190918, end: 20191008
  4. CARBOPLATIN. [Suspect]
     Active Substance: CARBOPLATIN
     Dosage: 250 MILLIGRAM, Q3W
     Route: 041
     Dates: start: 20191009
  5. PEMETREXED DISODIUM [Suspect]
     Active Substance: PEMETREXED DISODIUM
     Dosage: 350 MILLIGRAM, Q3W
     Route: 041
     Dates: start: 20191009
  6. KEYTRUDA [Suspect]
     Active Substance: PEMBROLIZUMAB
     Indication: LUNG ADENOCARCINOMA STAGE IV
     Dosage: 200 MILLIGRAM, Q3W
     Route: 041
     Dates: start: 20190827, end: 20201017
  7. CARBOPLATIN. [Suspect]
     Active Substance: CARBOPLATIN
     Indication: LUNG ADENOCARCINOMA STAGE IV
     Dosage: 450 MILLIGRAM, Q3W
     Route: 041
     Dates: start: 20190827, end: 20190917
  8. PEMETREXED DISODIUM [Suspect]
     Active Substance: PEMETREXED DISODIUM
     Indication: LUNG ADENOCARCINOMA STAGE IV
     Dosage: 750 MILLIGRAM, Q3W
     Route: 041
     Dates: start: 20190827, end: 20190917
  9. RABEPRAZOLE SODIUM. [Concomitant]
     Active Substance: RABEPRAZOLE SODIUM
     Indication: GASTROOESOPHAGEAL REFLUX DISEASE
  10. KEYTRUDA [Suspect]
     Active Substance: PEMBROLIZUMAB
     Dosage: 400 MILLIGRAM, EVERY 6 WEEKS
     Route: 041
     Dates: start: 20201018, end: 20210127
  11. PEMETREXED DISODIUM [Suspect]
     Active Substance: PEMETREXED DISODIUM
     Dosage: 550 MILLIGRAM, Q3W
     Route: 041
     Dates: start: 20190918, end: 20191008

REACTIONS (15)
  - C-reactive protein increased [Unknown]
  - Neutrophil count decreased [Recovered/Resolved]
  - Hyperuricaemia [Unknown]
  - Malignant neoplasm progression [Unknown]
  - Gastrointestinal necrosis [Unknown]
  - Febrile neutropenia [Recovered/Resolved]
  - Rash [Unknown]
  - Ascites [Unknown]
  - Hypoalbuminaemia [Unknown]
  - Myelosuppression [Unknown]
  - Blood alkaline phosphatase increased [Not Recovered/Not Resolved]
  - Small intestinal perforation [Fatal]
  - Immune-mediated enterocolitis [Fatal]
  - Biliary tract disorder [Unknown]
  - Pleural effusion [Unknown]

NARRATIVE: CASE EVENT DATE: 2019
